FAERS Safety Report 22616986 (Version 3)
Quarter: 2024Q2

REPORT INFORMATION
  Report Type: Spontaneous
  Country: US (occurrence: US)
  Receive Date: 20230620
  Receipt Date: 20240411
  Transmission Date: 20240716
  Serious: Yes (Other)
  Sender: FDA-Public Use
  Company Number: US-BIOGEN-2023BI01210917

PATIENT
  Age: 0 Year
  Sex: Male

DRUGS (1)
  1. SPINRAZA [Suspect]
     Active Substance: NUSINERSEN
     Indication: Spinal muscular atrophy
     Route: 050
     Dates: end: 20220923

REACTIONS (4)
  - Gross motor delay [Unknown]
  - Gastrointestinal infection [Recovered/Resolved]
  - Ear infection [Unknown]
  - Influenza [Unknown]

NARRATIVE: CASE EVENT DATE: 20230501
